FAERS Safety Report 23303718 (Version 1)
Quarter: 2023Q4

REPORT INFORMATION
  Report Type: Spontaneous
  Country: JP (occurrence: JP)
  Receive Date: 20231215
  Receipt Date: 20231215
  Transmission Date: 20240110
  Serious: Yes (Death, Hospitalization)
  Sender: FDA-Public Use
  Company Number: JP-Eisai-202311246_LEN-HCC_P_1

PATIENT
  Sex: Male

DRUGS (2)
  1. LENVIMA [Suspect]
     Active Substance: LENVATINIB
     Indication: Hepatocellular carcinoma
     Route: 048
     Dates: start: 20230601
  2. LENVIMA [Suspect]
     Active Substance: LENVATINIB
     Dosage: ON A 4-DAY-ON AND 3-DAY-OFF SCHEDULE
     Route: 048
     Dates: start: 2023

REACTIONS (2)
  - Neutropenic colitis [Fatal]
  - Jaundice [Unknown]

NARRATIVE: CASE EVENT DATE: 20230101
